FAERS Safety Report 9516489 (Version 1)
Quarter: 2013Q3

REPORT INFORMATION
  Report Type: Spontaneous
  Country: US (occurrence: US)
  Receive Date: 20130911
  Receipt Date: 20130911
  Transmission Date: 20140515
  Serious: Yes (Hospitalization, Other)
  Sender: FDA-Public Use
  Company Number: US-BAYER-2013-108467

PATIENT
  Age: 28 Year
  Sex: Female

DRUGS (3)
  1. LEVONORGESTREL [Suspect]
     Indication: CONTRACEPTION
     Dosage: UNK, CONT
  2. PREDNISONE [Concomitant]
  3. HYDROXYCHLOROQUINE [Concomitant]

REACTIONS (3)
  - Uterine perforation [Recovered/Resolved]
  - Peritonitis [Recovered/Resolved]
  - Sepsis [Recovered/Resolved]
